FAERS Safety Report 25669381 (Version 2)
Quarter: 2025Q3

REPORT INFORMATION
  Report Type: Report from Study
  Country: US (occurrence: US)
  Receive Date: 20250812
  Receipt Date: 20250910
  Transmission Date: 20251020
  Serious: No
  Sender: SUNOVION
  Company Number: US-SUMITOMO PHARMA SWITZERLAND GMBH-2025SPA010038

PATIENT
  Age: 70 Year
  Sex: Male

DRUGS (12)
  1. ORGOVYX [Suspect]
     Active Substance: RELUGOLIX
     Indication: Prostate cancer
     Route: 048
  2. AMLODIPINE [Concomitant]
     Active Substance: AMLODIPINE BESYLATE
  3. HYDROCHLOROTHIAZIDE [Concomitant]
     Active Substance: HYDROCHLOROTHIAZIDE
  4. ASPIRIN [Concomitant]
     Active Substance: ASPIRIN
  5. VITAMIN C [Concomitant]
     Active Substance: ASCORBIC ACID
  6. COLACE [Concomitant]
     Active Substance: DOCUSATE SODIUM
  7. GAS-X [Concomitant]
     Active Substance: DIMETHICONE
  8. Calcium citrate magnesium and zinc with vitamin d3 [Concomitant]
  9. CALCIUM CITRATE\CHOLECALCIFEROL [Concomitant]
     Active Substance: CALCIUM CITRATE\CHOLECALCIFEROL
  10. IRON\VITAMINS [Concomitant]
     Active Substance: IRON\VITAMINS
  11. LOSARTAN [Concomitant]
     Active Substance: LOSARTAN
  12. SENNA [Concomitant]
     Active Substance: SENNOSIDES

REACTIONS (4)
  - Hot flush [Unknown]
  - Myalgia [Unknown]
  - Fatigue [Unknown]
  - Incorrect dose administered [Recovered/Resolved]
